FAERS Safety Report 5789777-0 (Version None)
Quarter: 2008Q2

REPORT INFORMATION
  Report Type: 
  Country: None (occurrence: None)
  Receive Date: 20080626
  Receipt Date: 20080213
  Transmission Date: 20081010
  Serious: No
  Sender: FDA-Public Use
  Company Number: A0709290A

PATIENT
  Weight: 95.5 kg

DRUGS (1)
  1. ALLI [Suspect]

REACTIONS (3)
  - DRUG INEFFECTIVE [None]
  - FRUSTRATION [None]
  - THERAPEUTIC RESPONSE UNEXPECTED [None]
